FAERS Safety Report 4631293-3 (Version None)
Quarter: 2005Q2

REPORT INFORMATION
  Report Type: 
  Country: None (occurrence: None)
  Receive Date: 20050406
  Receipt Date: 20050331
  Transmission Date: 20051028
  Serious: Yes (Other)
  Sender: FDA-Public Use
  Company Number: 2005052202

PATIENT
  Age: 81 Year
  Sex: Male

DRUGS (3)
  1. LIPITOR [Suspect]
     Indication: BLOOD CHOLESTEROL INCREASED
     Dosage: 10 MG (10 MG, 1 IN 1 D)
     Dates: start: 19930101
  2. DILTIAZEM HYDROCHLORIDE [Concomitant]
  3. PAROXETINE HCL [Concomitant]

REACTIONS (3)
  - POLLAKIURIA [None]
  - PROSTATIC SPECIFIC ANTIGEN INCREASED [None]
  - TREATMENT NONCOMPLIANCE [None]
